FAERS Safety Report 7759045-6 (Version None)
Quarter: 2011Q3

REPORT INFORMATION
  Report Type: 
  Country: None (occurrence: None)
  Receive Date: 20110919
  Receipt Date: 20110914
  Transmission Date: 20111222
  Serious: Yes (Other)
  Sender: FDA-Public Use
  Company Number: US-BRISTOL-MYERS SQUIBB COMPANY-16061145

PATIENT
  Sex: Female

DRUGS (1)
  1. ONGLYZA [Suspect]

REACTIONS (1)
  - LIVER FUNCTION TEST ABNORMAL [None]
